FAERS Safety Report 21212386 (Version 7)
Quarter: 2023Q1

REPORT INFORMATION
  Report Type: Report from Study
  Country: CN (occurrence: None)
  Receive Date: 20220815
  Receipt Date: 20230207
  Transmission Date: 20230417
  Serious: Yes (Hospitalization)
  Sender: FDA-Public Use
  Company Number: CN-Eisai Medical Research-EC-2022-121280

PATIENT
  Age: 80 Year
  Sex: Male
  Weight: 54 kg

DRUGS (15)
  1. LENVATINIB [Suspect]
     Active Substance: LENVATINIB
     Indication: Oesophageal cancer metastatic
     Route: 048
     Dates: start: 20220511, end: 20220806
  2. PEMBROLIZUMAB [Suspect]
     Active Substance: PEMBROLIZUMAB
     Indication: Oesophageal cancer metastatic
     Route: 041
     Dates: start: 20220511, end: 20220628
  3. CISPLATIN [Suspect]
     Active Substance: CISPLATIN
     Indication: Oesophageal cancer metastatic
     Dosage: UNKNOWN DOSAGE
     Route: 041
     Dates: start: 20220512, end: 20220722
  4. FLUOROURACIL [Suspect]
     Active Substance: FLUOROURACIL
     Indication: Oesophageal cancer metastatic
     Dosage: UNKNOWN DOSAGE
     Route: 041
     Dates: start: 20220512, end: 20220726
  5. ONDANSETRON HYDROCHLORIDE [Concomitant]
     Active Substance: ONDANSETRON HYDROCHLORIDE
     Dates: start: 20220722, end: 20220727
  6. ACETAMINOPHEN\TRAMADOL HYDROCHLORIDE [Concomitant]
     Active Substance: ACETAMINOPHEN\TRAMADOL HYDROCHLORIDE
     Dates: start: 20220527, end: 20221128
  7. MEGESTROL ACETATE [Concomitant]
     Active Substance: MEGESTROL ACETATE
     Dates: start: 20220517, end: 20221128
  8. DEXTROSE AND SODIUM CHLORIDE [Concomitant]
     Active Substance: DEXTROSE MONOHYDRATE\SODIUM CHLORIDE
     Dates: start: 20220721, end: 20220726
  9. GLUTATHIONE [Concomitant]
     Active Substance: GLUTATHIONE
     Dates: start: 20220721, end: 20220727
  10. LANSOPRAZOLE [Concomitant]
     Active Substance: LANSOPRAZOLE
     Dates: start: 20220721, end: 20220727
  11. MANNITOL [Concomitant]
     Active Substance: MANNITOL
     Dates: start: 20220721, end: 20220726
  12. LORATADINE [Concomitant]
     Active Substance: LORATADINE
     Dates: start: 20220724, end: 20220727
  13. CALAMINE LOTION [Concomitant]
     Active Substance: CALAMINE LOTION
     Dates: start: 20220725, end: 20220808
  14. RIVAROXABAN [Concomitant]
     Active Substance: RIVAROXABAN
     Dates: start: 20220729, end: 20220807
  15. DEXTROSE [Concomitant]
     Active Substance: DEXTROSE
     Dates: start: 20220721, end: 20220726

REACTIONS (1)
  - Pulmonary embolism [Not Recovered/Not Resolved]

NARRATIVE: CASE EVENT DATE: 20220807
